FAERS Safety Report 9713425 (Version 2)
Quarter: 2013Q4

REPORT INFORMATION
  Report Type: Spontaneous
  Country: FR (occurrence: FR)
  Receive Date: 20131126
  Receipt Date: 20131231
  Transmission Date: 20140711
  Serious: Yes (Other)
  Sender: FDA-Public Use
  Company Number: FR-JNJFOC-20131113706

PATIENT
  Sex: Male

DRUGS (9)
  1. XARELTO [Suspect]
     Indication: CEREBROVASCULAR ACCIDENT PROPHYLAXIS
     Route: 048
     Dates: start: 20130515, end: 20131120
  2. XARELTO [Suspect]
     Indication: ATRIAL FIBRILLATION
     Route: 048
     Dates: start: 20130515, end: 20131120
  3. ALDACTAZINE [Concomitant]
     Route: 065
  4. VASTEN [Concomitant]
     Route: 065
  5. LOXEN [Concomitant]
     Route: 065
  6. RISORDAN [Concomitant]
     Route: 065
  7. CARDENSIEL [Concomitant]
     Route: 065
  8. PERMIXON [Concomitant]
     Route: 065
  9. ZYLORIC [Concomitant]
     Route: 065

REACTIONS (1)
  - Haemoglobin decreased [Unknown]
